FAERS Safety Report 6572122-0 (Version None)
Quarter: 2010Q1

REPORT INFORMATION
  Report Type: 
  Country: None (occurrence: None)
  Receive Date: 20100205
  Receipt Date: 20100126
  Transmission Date: 20100710
  Serious: Yes (Other)
  Sender: FDA-Public Use
  Company Number: PHHY2009NL57068

PATIENT
  Sex: Female
  Weight: 60.4 kg

DRUGS (7)
  1. DIOVAN [Suspect]
     Indication: HYPERTENSION
     Dosage: 40 MG/ DAY
     Route: 048
     Dates: start: 20090930
  2. PANTOZOL [Concomitant]
     Indication: ABDOMINAL DISCOMFORT
     Dosage: 40 MG, UNK
     Route: 048
     Dates: start: 20060924
  3. CRESTOR [Concomitant]
     Indication: HYPERCHOLESTEROLAEMIA
     Dosage: 10 MG, UNK
     Route: 048
     Dates: start: 20080924
  4. ASCAL CARDIO [Concomitant]
     Indication: ANGINA PECTORIS
     Dosage: 100 MG, UNK
     Route: 048
     Dates: start: 20090205
  5. ASCAL CARDIO [Concomitant]
     Indication: PERCUTANEOUS CORONARY INTERVENTION
  6. BISOPROLOL [Concomitant]
     Indication: ANGINA PECTORIS
     Dosage: 2.5 MG, UNK
     Route: 048
     Dates: start: 20090304
  7. PROMOCARD [Concomitant]
     Indication: ANGINA PECTORIS
     Dosage: 30 MG, UNK
     Route: 048
     Dates: start: 20090922

REACTIONS (2)
  - BLADDER CATHETERISATION [None]
  - CYSTITIS [None]
